FAERS Safety Report 6123402-4 (Version None)
Quarter: 2009Q1

REPORT INFORMATION
  Report Type: 
  Country: None (occurrence: None)
  Receive Date: 20090318
  Receipt Date: 20090310
  Transmission Date: 20090719
  Serious: Yes (Other)
  Sender: FDA-Public Use
  Company Number: PHHY2009US08939

PATIENT
  Age: 66 Year
  Sex: Male

DRUGS (1)
  1. IMATINIB MESYLATE [Suspect]
     Dosage: 400 MG DAILY

REACTIONS (2)
  - COLON CANCER [None]
  - SURGERY [None]
